FAERS Safety Report 20115173 (Version 2)
Quarter: 2022Q1

REPORT INFORMATION
  Report Type: Report from Study
  Country: US (occurrence: US)
  Receive Date: 20211125
  Receipt Date: 20220307
  Transmission Date: 20220423
  Serious: Yes (Hospitalization, Other)
  Sender: FDA-Public Use
  Company Number: US-ABBVIE-21K-163-4172799-00

PATIENT
  Age: 74 Year
  Sex: Male

DRUGS (1)
  1. VENCLEXTA [Suspect]
     Active Substance: VENETOCLAX
     Indication: Product used for unknown indication
     Route: 048

REACTIONS (5)
  - Cardiac disorder [Unknown]
  - Coronary artery disease [Unknown]
  - Myocardial infarction [Unknown]
  - Drug intolerance [Unknown]
  - Troponin increased [Unknown]

NARRATIVE: CASE EVENT DATE: 20211115
